FAERS Safety Report 5612096-X (Version None)
Quarter: 2008Q1

REPORT INFORMATION
  Report Type: 
  Country: None (occurrence: None)
  Receive Date: 20080204
  Receipt Date: 20080124
  Transmission Date: 20080703
  Serious: Yes (Other)
  Sender: FDA-Public Use
  Company Number: PHBS2007JP05427

PATIENT

DRUGS (2)
  1. SANDOSTATIN [Suspect]
     Indication: CHYLOTHORAX
     Dosage: 0.2 UG/KG/H
     Route: 065
  2. SANDOSTATIN [Suspect]
     Dosage: 0.6 UG/KG/H
     Route: 065

REACTIONS (1)
  - BONE MARROW FAILURE [None]
